FAERS Safety Report 8111077-4 (Version None)
Quarter: 2012Q1

REPORT INFORMATION
  Report Type: 
  Country: None (occurrence: None)
  Receive Date: 20120203
  Receipt Date: 20110405
  Transmission Date: 20120608
  Serious: No
  Sender: FDA-Public Use
  Company Number: US-GLAXOSMITHKLINE-A0921479A

PATIENT
  Age: 41 Year
  Sex: Female

DRUGS (3)
  1. LAMICTAL [Suspect]
     Indication: SENSORY DISTURBANCE
     Dosage: 200MG PER DAY
     Route: 048
  2. DIAZEPAM [Concomitant]
  3. EFFEXOR [Concomitant]

REACTIONS (9)
  - LYMPHADENOPATHY [None]
  - HAIR TEXTURE ABNORMAL [None]
  - MUSCULOSKELETAL PAIN [None]
  - PAIN IN EXTREMITY [None]
  - NECK PAIN [None]
  - BACK PAIN [None]
  - WEIGHT DECREASED [None]
  - TREMOR [None]
  - DECREASED APPETITE [None]
